FAERS Safety Report 6378758-4 (Version None)
Quarter: 2009Q3

REPORT INFORMATION
  Report Type: 
  Country: None (occurrence: None)
  Receive Date: 20090921
  Receipt Date: 20090911
  Transmission Date: 20100115
  Serious: Yes (Hospitalization)
  Sender: FDA-Public Use
  Company Number: DSU-2009-01953

PATIENT
  Age: 37 Year
  Sex: Female
  Weight: 106.1417 kg

DRUGS (8)
  1. BENICAR HCT [Suspect]
     Indication: HYPERTENSION
     Dosage: 20/MG, PER ORAL
     Route: 048
     Dates: end: 20080901
  2. MULTIVITAMIN [Concomitant]
  3. GEMFIBROZIL (GEMFIBROZIL) (600 MILLIGRAM) (GEMFIBROZIL) [Concomitant]
  4. PRAVASTATIN (PRAVASTATIN) (40 MILLIGRAM) (PRAVASTATIN) [Concomitant]
  5. CARVEDILOL (CARVEDILOL) (25 MILLIGRAM) (CARVEDILOL) [Concomitant]
  6. ASPIRIN (ACETYLSALICYLIC ACID) (81 MILLIGRAM) (ACETYLSALICYLIC ACID) [Concomitant]
  7. FAMOTIDINE (FAMOTIDINE) (20 MILLIGRAM) (FAMOTIDINE) [Concomitant]
  8. FISH OIL (FISH OIL) (4000 MILLIGRAM) (FISH OIL) [Concomitant]

REACTIONS (3)
  - ANGINA PECTORIS [None]
  - CORONARY ARTERY OCCLUSION [None]
  - ECONOMIC PROBLEM [None]
